FAERS Safety Report 4908385-4 (Version None)
Quarter: 2006Q1

REPORT INFORMATION
  Report Type: 
  Country: None (occurrence: None)
  Receive Date: 20060210
  Receipt Date: 20060201
  Transmission Date: 20060701
  Serious: Yes (Other)
  Sender: FDA-Public Use
  Company Number: US-AVENTIS-200611231US

PATIENT
  Sex: Female

DRUGS (13)
  1. LANTUS [Suspect]
     Indication: DIABETES MELLITUS NON-INSULIN-DEPENDENT
     Dates: start: 20051201
  2. LANTUS [Suspect]
  3. NITROGLYCERIN [Concomitant]
     Dosage: DOSE: UNK
  4. ADVAIR DISKUS 100/50 [Concomitant]
     Dosage: DOSE: 250/50 MCG
  5. XANAX [Concomitant]
  6. LEXAPRIL [Concomitant]
     Indication: DEPRESSION
  7. FLEXERIL [Concomitant]
     Indication: MUSCLE RELAXANT THERAPY
  8. DILANTIN [Concomitant]
     Indication: CONVULSION
  9. MIRALAX [Concomitant]
     Indication: LAXATIVE SUPPORTIVE CARE
     Dosage: DOSE: UNK
  10. BUTALBITAL, ACETAMINOPHEN, CAFFEINE [Concomitant]
     Indication: PAIN
  11. CAPOTEN [Concomitant]
  12. COREG [Concomitant]
  13. MEVACOR [Concomitant]
     Indication: BLOOD CHOLESTEROL

REACTIONS (10)
  - ASTHENIA [None]
  - BLOOD PRESSURE INCREASED [None]
  - CHEST PAIN [None]
  - CONFUSIONAL STATE [None]
  - DIZZINESS [None]
  - DRY SKIN [None]
  - HYPERGLYCAEMIA [None]
  - HYPERSENSITIVITY [None]
  - KETOSIS [None]
  - PRURITUS [None]
